FAERS Safety Report 5246443-8 (Version None)
Quarter: 2007Q1

REPORT INFORMATION
  Report Type: 
  Country: None (occurrence: None)
  Receive Date: 20070216
  Receipt Date: 20070202
  Transmission Date: 20070707
  Serious: Yes (Death, Other)
  Sender: FDA-Public Use
  Company Number: 152563ISR

PATIENT
  Age: 74 Year
  Sex: Female

DRUGS (2)
  1. TRIMETHOPRIM [Suspect]
     Indication: URINARY TRACT INFECTION
     Dosage: 150 MG ORAL
     Route: 048
     Dates: start: 20050830, end: 20050902
  2. METHOTREXATE [Suspect]
     Indication: RHEUMATOID ARTHRITIS
     Dosage: 1 IN 1 WK

REACTIONS (4)
  - CLOSTRIDIAL INFECTION [None]
  - DRUG INTERACTION [None]
  - KLEBSIELLA SEPSIS [None]
  - NEUTROPENIA [None]
